FAERS Safety Report 25382265 (Version 1)
Quarter: 2025Q2

REPORT INFORMATION
  Report Type: Report from Study
  Country: US (occurrence: US)
  Receive Date: 20250531
  Receipt Date: 20250531
  Transmission Date: 20250717
  Serious: Yes (Other)
  Sender: GILEAD
  Company Number: US-GILEAD-2025-0714999

PATIENT
  Sex: Female

DRUGS (1)
  1. AZTREONAM LYSINE [Suspect]
     Active Substance: AZTREONAM LYSINE
     Indication: Cystic fibrosis
     Dosage: 75 MG, TID [INHALE 1 VIAL (75 MG) VIA ALTERA NEBULIZER, ALTERNATING 28 DAYS ON AND 28 DAYS OFF]
     Route: 055

REACTIONS (1)
  - Cystic fibrosis [Unknown]
